FAERS Safety Report 4888294-X (Version None)
Quarter: 2006Q1

REPORT INFORMATION
  Report Type: 
  Country: None (occurrence: None)
  Receive Date: 20060123
  Receipt Date: 20051201
  Transmission Date: 20060701
  Serious: Yes (Other)
  Sender: FDA-Public Use
  Company Number: US-GLAXOSMITHKLINE-A0584279A

PATIENT
  Sex: Male

DRUGS (6)
  1. AVODART [Suspect]
     Indication: BENIGN PROSTATIC HYPERPLASIA
     Dosage: .5MG PER DAY
     Route: 048
     Dates: start: 20051124
  2. TIMOLOL MALEATE [Concomitant]
  3. NORVASC [Concomitant]
  4. XANAX [Concomitant]
  5. ASPIRIN [Concomitant]
  6. TYLENOL (CAPLET) [Concomitant]

REACTIONS (2)
  - EYE HAEMORRHAGE [None]
  - MICTURITION FREQUENCY DECREASED [None]
